FAERS Safety Report 9053292 (Version 1)
Quarter: 2013Q1

REPORT INFORMATION
  Report Type: Spontaneous
  Country: GB (occurrence: GB)
  Receive Date: 20130207
  Receipt Date: 20130207
  Transmission Date: 20140127
  Serious: Yes (Other)
  Sender: FDA-Public Use
  Company Number: GB-B.I. PHARMACEUTICALS,INC./RIDGEFIELD-2013-UK-00174UK

PATIENT
  Age: 46 Year
  Sex: Female

DRUGS (4)
  1. MIRAPEXIN [Suspect]
     Indication: RESTLESS LEGS SYNDROME
     Dosage: 0.18 MG
     Route: 048
     Dates: start: 20121108
  2. EVOREL SEQUI [Concomitant]
  3. FOLIC ACID [Concomitant]
     Dosage: 5 MG
  4. METHOTREXATE [Concomitant]
     Dosage: 15 MG

REACTIONS (2)
  - Restless legs syndrome [Recovered/Resolved]
  - Product substitution issue [Recovered/Resolved]
